FAERS Safety Report 6930607-9 (Version None)
Quarter: 2010Q3

REPORT INFORMATION
  Report Type: 
  Country: None (occurrence: None)
  Receive Date: 20100818
  Receipt Date: 20100812
  Transmission Date: 20110219
  Serious: Yes (Hospitalization)
  Sender: FDA-Public Use
  Company Number: FR-MERCK-1008FRA00032

PATIENT
  Age: 64 Year
  Sex: Male

DRUGS (6)
  1. INVANZ [Suspect]
     Indication: INFECTION
     Route: 048
     Dates: start: 20100415, end: 20100421
  2. CEFOTAXIME SODIUM [Suspect]
     Indication: INFECTION
     Route: 042
     Dates: start: 20100421, end: 20100429
  3. TRAMADOL HYDROCHLORIDE [Suspect]
     Route: 042
     Dates: start: 20100401, end: 20100424
  4. NEFOPAM HYDROCHLORIDE [Suspect]
     Route: 042
     Dates: start: 20100426, end: 20100430
  5. CEFTRIAXONE SODIUM [Concomitant]
     Route: 065
     Dates: start: 20100401, end: 20100414
  6. AMIKACIN SULFATE [Concomitant]
     Route: 065
     Dates: start: 20100406, end: 20100423

REACTIONS (4)
  - COMPLEX PARTIAL SEIZURES [None]
  - DISORIENTATION [None]
  - HALLUCINATION, VISUAL [None]
  - HYPERHIDROSIS [None]
